FAERS Safety Report 4665734-2 (Version None)
Quarter: 2005Q2

REPORT INFORMATION
  Report Type: 
  Country: None (occurrence: None)
  Receive Date: 20050519
  Receipt Date: 20050511
  Transmission Date: 20051028
  Serious: Yes (Disabling)
  Sender: FDA-Public Use
  Company Number: US-BOEHRINGER INGELHEIM PHARMACEUTICALS, INC.-2005-BP-07921BP

PATIENT
  Sex: Male

DRUGS (12)
  1. FLOMAX [Suspect]
     Indication: BLADDER DISORDER
     Dates: start: 20010101, end: 20030101
  2. FLOMAX [Suspect]
     Dates: start: 20030101
  3. FLOMAX [Suspect]
     Dates: start: 20041101
  4. NORVASC [Concomitant]
     Route: 048
  5. ADVAIR DISKUS 100/50 [Concomitant]
     Route: 055
  6. ZOCOR [Concomitant]
     Route: 048
  7. NITROGLYCERIN [Concomitant]
     Route: 061
  8. DIFUZANOLE [Concomitant]
     Route: 048
  9. PRILOSEC [Concomitant]
     Route: 048
  10. PINDILOL [Concomitant]
     Route: 048
  11. ASPIRIN [Concomitant]
     Route: 048
  12. XALATAN [Concomitant]
     Dosage: GTT

REACTIONS (3)
  - BLINDNESS UNILATERAL [None]
  - EYE DISORDER [None]
  - RETINAL HAEMORRHAGE [None]
